FAERS Safety Report 19262363 (Version 1)
Quarter: 2021Q2

REPORT INFORMATION
  Report Type: Other
  Country: CA (occurrence: CA)
  Receive Date: 20210516
  Receipt Date: 20210516
  Transmission Date: 20210717
  Serious: Yes (Other)
  Sender: FDA-Public Use
  Company Number: CA-CELLTRION INC.-2021CA006387

PATIENT

DRUGS (25)
  1. RITUXIMAB (UNKNOWN) [Suspect]
     Active Substance: RITUXIMAB
     Indication: VASCULITIS
     Dosage: 800 MILLIGRAM, 1 EVERY 1 WEEKS
     Route: 041
  2. AZATHIOPRINE. [Concomitant]
     Active Substance: AZATHIOPRINE
  3. GRAVOL [Concomitant]
     Active Substance: DIMENHYDRINATE
  4. METHOTREXATE. [Concomitant]
     Active Substance: METHOTREXATE
     Dosage: 25 MILLIGRAM, 1 EVERY 1 WEEK
     Route: 058
  5. RITUXIMAB (UNKNOWN) [Suspect]
     Active Substance: RITUXIMAB
     Dosage: 500 MILLIGRAM, 1 EVERY 1 WEEKS
     Route: 041
  6. PREDNISONE. [Suspect]
     Active Substance: PREDNISONE
     Indication: PRODUCT USED FOR UNKNOWN INDICATION
     Dosage: 5 MILLIGRAM
     Route: 065
  7. APO?SULFATRIM [Concomitant]
     Active Substance: SULFAMETHOXAZOLE\TRIMETHOPRIM
  8. RITUXIMAB (UNKNOWN) [Suspect]
     Active Substance: RITUXIMAB
     Indication: GRANULOMATOSIS WITH POLYANGIITIS
     Dosage: 1000 MILLIGRAM
     Route: 041
  9. RITUXIMAB (UNKNOWN) [Suspect]
     Active Substance: RITUXIMAB
     Dosage: 1000 MILLIGRAM
     Route: 041
  10. PREDNISONE. [Suspect]
     Active Substance: PREDNISONE
     Indication: PRODUCT USED FOR UNKNOWN INDICATION
     Dosage: 3 MILLIGRAM
     Route: 065
  11. CALCIUM CARBONATE;ETIDRONATE DISODIUM [Concomitant]
     Active Substance: CALCIUM CARBONATE\ETIDRONATE DISODIUM
  12. AVAPRO [Concomitant]
     Active Substance: IRBESARTAN
  13. PARIET [Concomitant]
     Active Substance: RABEPRAZOLE SODIUM
  14. INSULIN [Concomitant]
     Active Substance: INSULIN NOS
  15. STATEX [Concomitant]
  16. SULFATRIM [Concomitant]
     Active Substance: SULFAMETHOXAZOLE\TRIMETHOPRIM
  17. CARBOMER [Concomitant]
     Active Substance: CARBOMER
  18. FOLIC ACID. [Concomitant]
     Active Substance: FOLIC ACID
  19. HUMALOG [Concomitant]
     Active Substance: INSULIN LISPRO
  20. IRBESARTAN. [Concomitant]
     Active Substance: IRBESARTAN
     Route: 065
  21. METFORMIN [Concomitant]
     Active Substance: METFORMIN HYDROCHLORIDE
     Route: 065
  22. MOXIFLOXACIN. [Concomitant]
     Active Substance: MOXIFLOXACIN
  23. AZATHIOPRINE. [Concomitant]
     Active Substance: AZATHIOPRINE
  24. FERROUS GLUCONATE [Concomitant]
     Active Substance: FERROUS GLUCONATE
  25. RABEPRAZOLE [Concomitant]
     Active Substance: RABEPRAZOLE

REACTIONS (12)
  - Eye inflammation [Not Recovered/Not Resolved]
  - Inflammation [Not Recovered/Not Resolved]
  - Feeling abnormal [Not Recovered/Not Resolved]
  - Granulomatosis with polyangiitis [Not Recovered/Not Resolved]
  - Immunodeficiency [Not Recovered/Not Resolved]
  - Psychiatric symptom [Not Recovered/Not Resolved]
  - Arthralgia [Not Recovered/Not Resolved]
  - Eye pain [Not Recovered/Not Resolved]
  - Weight decreased [Not Recovered/Not Resolved]
  - Oropharyngeal pain [Not Recovered/Not Resolved]
  - Scleritis [Not Recovered/Not Resolved]
  - Pain [Not Recovered/Not Resolved]
